FAERS Safety Report 20516342 (Version 1)
Quarter: 2022Q1

REPORT INFORMATION
  Report Type: Spontaneous
  Country: US (occurrence: US)
  Receive Date: 20220225
  Receipt Date: 20220225
  Transmission Date: 20220423
  Serious: Yes (Other)
  Sender: FDA-Public Use
  Company Number: US-CELLTRION INC.-2022US001974

PATIENT

DRUGS (2)
  1. TRUXIMA [Suspect]
     Active Substance: RITUXIMAB-ABBS
     Indication: Lupus nephritis
     Dosage: 1000 MG DAY 1 AND 15 EVERY 6 MONTHS
     Dates: start: 20210306
  2. TRUXIMA [Suspect]
     Active Substance: RITUXIMAB-ABBS
     Dosage: 1000 MG DAY 1 AND DAY 15 EVERY 6 MONTHS (MOST RECENT THERAPY DATE) 10MG/ML
     Dates: start: 20211220

REACTIONS (2)
  - Lupus nephritis [Unknown]
  - Off label use [Unknown]
